FAERS Safety Report 23302287 (Version 2)
Quarter: 2023Q4

REPORT INFORMATION
  Report Type: Spontaneous
  Country: AT (occurrence: AT)
  Receive Date: 20231215
  Receipt Date: 20231226
  Transmission Date: 20240110
  Serious: Yes (Other)
  Sender: FDA-Public Use
  Company Number: AT-JNJFOC-20231202311

PATIENT
  Age: 56 Year

DRUGS (8)
  1. RITUXIMAB [Suspect]
     Active Substance: RITUXIMAB
     Indication: Mantle cell lymphoma
     Dosage: FORM AND ROUTE: UNKNOWN
  2. CYCLOPHOSPHAMIDE\DOXORUBICIN\PREDNISONE\RITUXIMAB\VINCRISTINE [Suspect]
     Active Substance: CYCLOPHOSPHAMIDE\DOXORUBICIN\PREDNISONE\RITUXIMAB\VINCRISTINE
     Indication: Mantle cell lymphoma
     Dosage: ROUTE AND FORM: UNKNOWN
  3. CYCLOPHOSPHAMIDE\DOXORUBICIN\PREDNISONE\RITUXIMAB\VINCRISTINE [Suspect]
     Active Substance: CYCLOPHOSPHAMIDE\DOXORUBICIN\PREDNISONE\RITUXIMAB\VINCRISTINE
     Dosage: FOA - UNKNOWN?ROA - UNKNOWN
  4. IMBRUVICA [Suspect]
     Active Substance: IBRUTINIB
     Indication: Mantle cell lymphoma
  5. IMBRUVICA [Suspect]
     Active Substance: IBRUTINIB
     Dosage: FOA - UNKNOWN?ROA - ORAL
  6. DEXAMETHASONE [Suspect]
     Active Substance: DEXAMETHASONE
  7. CYTARABINE [Suspect]
     Active Substance: CYTARABINE
  8. CISPLATIN [Suspect]
     Active Substance: CISPLATIN

REACTIONS (2)
  - Malignant pleural effusion [Unknown]
  - Intentional product use issue [Unknown]
